FAERS Safety Report 8274684-4 (Version None)
Quarter: 2012Q2

REPORT INFORMATION
  Report Type: 
  Country: None (occurrence: None)
  Receive Date: 20120411
  Receipt Date: 20120405
  Transmission Date: 20120825
  Serious: Yes (Hospitalization)
  Sender: FDA-Public Use
  Company Number: US-CELGENEUS-163-20785-12040787

PATIENT
  Sex: Female
  Weight: 61 kg

DRUGS (2)
  1. THALOMID [Suspect]
     Indication: MULTIPLE MYELOMA
     Route: 048
     Dates: start: 20110101
  2. FENTANYL [Concomitant]
     Indication: BACK PAIN
     Dosage: 87 MICROGRAM
     Route: 065

REACTIONS (1)
  - SPINAL CORD COMPRESSION [None]
